FAERS Safety Report 5571304-4 (Version None)
Quarter: 2007Q4

REPORT INFORMATION
  Report Type: 
  Country: None (occurrence: None)
  Receive Date: 20071221
  Receipt Date: 20070530
  Transmission Date: 20080405
  Serious: No
  Sender: FDA-Public Use
  Company Number: A0653535A

PATIENT
  Age: 68 Year
  Sex: Female

DRUGS (7)
  1. FLUTICASONE PROPIONATE [Suspect]
     Dosage: 50MG PER DAY
     Route: 045
     Dates: start: 20070511
  2. PROVENTIL [Concomitant]
  3. GLYBURIDE [Concomitant]
  4. METFORMIN HCL [Concomitant]
  5. TRIAMTERENE [Concomitant]
  6. LOVASTATIN [Concomitant]
  7. LISINOPRIL [Concomitant]

REACTIONS (3)
  - BACK PAIN [None]
  - COUGH [None]
  - DRUG INEFFECTIVE [None]
